FAERS Safety Report 23935652 (Version 2)
Quarter: 2024Q4

REPORT INFORMATION
  Report Type: Report from Study
  Country: CA (occurrence: CA)
  Receive Date: 20240604
  Receipt Date: 20241008
  Transmission Date: 20250115
  Serious: Yes (Hospitalization, Other)
  Sender: ABBVIE
  Company Number: CA-ABBVIE-5760059

PATIENT
  Sex: Female

DRUGS (3)
  1. HUMIRA [Suspect]
     Active Substance: ADALIMUMAB
     Indication: Crohn^s disease
     Dosage: FORM STRENGTH: 40 MILLIGRAM
     Route: 058
     Dates: start: 20221027
  2. HUMIRA [Suspect]
     Active Substance: ADALIMUMAB
     Dosage: FORM STRENGTH: 40 MILLIGRAM
     Route: 058
  3. FRAGMIN [Suspect]
     Active Substance: DALTEPARIN SODIUM
     Indication: Pulmonary embolism
     Route: 065

REACTIONS (7)
  - Enterocutaneous fistula [Recovering/Resolving]
  - Anaemia [Unknown]
  - Post procedural pulmonary embolism [Unknown]
  - Rectal haemorrhage [Unknown]
  - Abdominal pain [Unknown]
  - Frequent bowel movements [Unknown]
  - Defaecation urgency [Unknown]

NARRATIVE: CASE EVENT DATE: 20240101
